FAERS Safety Report 11873181 (Version 1)
Quarter: 2015Q4

REPORT INFORMATION
  Report Type: Spontaneous
  Country: US (occurrence: US)
  Receive Date: 20151228
  Receipt Date: 20151228
  Transmission Date: 20160305
  Serious: Yes (Hospitalization)
  Sender: FDA-Public Use
  Company Number: US-SA-2015SA214361

PATIENT
  Age: 77 Year
  Sex: Male

DRUGS (3)
  1. TOUJEO [Suspect]
     Active Substance: INSULIN GLARGINE
     Indication: DIABETES MELLITUS
     Dosage: DOSE:30 UNIT(S)
     Route: 065
     Dates: start: 2015
  2. NOVOLOG [Concomitant]
     Active Substance: INSULIN ASPART
     Dosage: WITH MEALS DOSE:8 UNIT(S)
  3. SOLOSTAR [Concomitant]
     Active Substance: DEVICE
     Indication: DIABETES MELLITUS
     Dates: start: 2015

REACTIONS (7)
  - Blood potassium decreased [Unknown]
  - Drug administration error [Unknown]
  - Blood magnesium decreased [Unknown]
  - Incorrect product storage [Unknown]
  - Palpitations [Unknown]
  - Tremor [Unknown]
  - Unevaluable event [Unknown]

NARRATIVE: CASE EVENT DATE: 201511
